FAERS Safety Report 7573577-5 (Version None)
Quarter: 2011Q2

REPORT INFORMATION
  Report Type: 
  Country: None (occurrence: None)
  Receive Date: 20110627
  Receipt Date: 20110616
  Transmission Date: 20111010
  Serious: Yes (Other)
  Sender: FDA-Public Use
  Company Number: BR-US-EMD SERONO, INC.-7064197

PATIENT
  Sex: Female

DRUGS (11)
  1. METFORMIN HCL [Concomitant]
  2. LACTULONE [Concomitant]
  3. FLUCONAZOLE [Concomitant]
  4. HUMECTOL [Concomitant]
  5. REBIF [Suspect]
     Indication: RELAPSING-REMITTING MULTIPLE SCLEROSIS
     Route: 058
     Dates: start: 20071105
  6. OMEPRAZOLE [Concomitant]
  7. NORFLOXACIN [Concomitant]
  8. GLIMEPIRIDE [Concomitant]
  9. INSULINE NPH [Concomitant]
  10. ACETAMINOPHEN [Concomitant]
  11. BACLOFEN [Concomitant]

REACTIONS (3)
  - DIABETES MELLITUS INADEQUATE CONTROL [None]
  - URINARY TRACT INFECTION [None]
  - URINE COLOUR ABNORMAL [None]
